FAERS Safety Report 19107282 (Version 1)
Quarter: 2021Q2

REPORT INFORMATION
  Report Type: Spontaneous
  Country: TN (occurrence: TN)
  Receive Date: 20210408
  Receipt Date: 20210408
  Transmission Date: 20210717
  Serious: Yes (Hospitalization)
  Sender: FDA-Public Use
  Company Number: TN-MICRO LABS LIMITED-ML2021-01035

PATIENT
  Age: 42 Year
  Sex: Female

DRUGS (1)
  1. PIROXICAM. [Suspect]
     Active Substance: PIROXICAM
     Indication: TOOTHACHE
     Route: 030

REACTIONS (1)
  - Acute generalised exanthematous pustulosis [Recovering/Resolving]
